FAERS Safety Report 14871732 (Version 1)
Quarter: 2018Q2

REPORT INFORMATION
  Report Type: Spontaneous
  Country: US (occurrence: US)
  Receive Date: 20180509
  Receipt Date: 20180509
  Transmission Date: 20180711
  Serious: No
  Sender: FDA-Public Use
  Company Number: US-BAYER-2018-080440

PATIENT
  Age: 72 Year
  Sex: Female
  Weight: 87.98 kg

DRUGS (4)
  1. LOVASTATIN. [Suspect]
     Active Substance: LOVASTATIN
  2. SPIRONOLACTONE. [Concomitant]
     Active Substance: SPIRONOLACTONE
  3. BAYER LOW DOSE [Suspect]
     Active Substance: ASPIRIN
     Indication: ANTICOAGULANT THERAPY
     Route: 048
  4. ALEVE PM [Suspect]
     Active Substance: DIPHENHYDRAMINE HYDROCHLORIDE\NAPROXEN SODIUM
     Indication: PAIN
     Dosage: 1 DF, UNK
     Route: 048
     Dates: start: 201803, end: 20180416

REACTIONS (6)
  - Underdose [Unknown]
  - Product use in unapproved indication [None]
  - Off label use [None]
  - Poor quality sleep [Unknown]
  - Drug administration error [None]
  - Eye irritation [Recovered/Resolved]

NARRATIVE: CASE EVENT DATE: 201803
